FAERS Safety Report 4957391-2 (Version None)
Quarter: 2006Q1

REPORT INFORMATION
  Report Type: 
  Country: None (occurrence: None)
  Receive Date: 20060327
  Receipt Date: 20060316
  Transmission Date: 20060701
  Serious: Yes (Other)
  Sender: FDA-Public Use
  Company Number: CIP06000103

PATIENT
  Age: 61 Year
  Sex: Female
  Weight: 71.2 kg

DRUGS (11)
  1. ACTONEL [Suspect]
     Indication: OSTEOPOROSIS
     Dosage: 35 MG ONCE WEEKLY, ORAL
     Route: 048
     Dates: start: 20041001, end: 20050701
  2. INDERAL LA [Concomitant]
  3. QUINAPRIL AND HYDROCHLOROTHIAZIDE (HYDROCHLOROTHIAZIDE, QUINAPRIL HYDR [Concomitant]
  4. ASPIRIN [Concomitant]
  5. NASONEX [Concomitant]
  6. MULTIVIT (VITAMINS NOS) [Concomitant]
  7. CALCIUM (CALCIUM) [Concomitant]
  8. MAGNESIUM CITRATE (MAGNESIUM CITRATE) [Concomitant]
  9. GLUCOSAMINE (CLUCOSAMINE) [Concomitant]
  10. HYDROXYZINE HCL [Concomitant]
  11. AMOXICILLIN [Concomitant]

REACTIONS (1)
  - RETINAL VEIN OCCLUSION [None]
